FAERS Safety Report 6849036-1 (Version None)
Quarter: 2010Q3

REPORT INFORMATION
  Report Type: 
  Country: None (occurrence: None)
  Receive Date: 20100716
  Receipt Date: 20070927
  Transmission Date: 20110219
  Serious: No
  Sender: FDA-Public Use
  Company Number: US-PFIZER INC-2007080878

PATIENT
  Sex: Female
  Weight: 61.818 kg

DRUGS (2)
  1. CHANTIX [Suspect]
     Indication: SMOKING CESSATION THERAPY
     Dates: start: 20070925
  2. CLONAZEPAM [Concomitant]
     Indication: ANXIETY
     Dates: start: 20010101

REACTIONS (2)
  - ABNORMAL DREAMS [None]
  - NOCTURIA [None]
